FAERS Safety Report 25829165 (Version 2)
Quarter: 2025Q4

REPORT INFORMATION
  Report Type: Spontaneous
  Country: BR (occurrence: BR)
  Receive Date: 20250922
  Receipt Date: 20251106
  Transmission Date: 20260118
  Serious: Yes (Other)
  Sender: CURRAX PHARMACEUTICALS
  Company Number: BR-CURRAX PHARMACEUTICALS LLC-BR-2025CUR001922

PATIENT
  Sex: Female

DRUGS (4)
  1. CONTRAVE [Suspect]
     Active Substance: BUPROPION HYDROCHLORIDE\NALTREXONE HYDROCHLORIDE
     Indication: Binge eating
     Dosage: 1 DOSAGE FORM (1 IN 1 DAY), 1 TB PER DAY
     Route: 048
     Dates: start: 20250510
  2. CONTRAVE [Suspect]
     Active Substance: BUPROPION HYDROCHLORIDE\NALTREXONE HYDROCHLORIDE
     Indication: Obesity
     Dosage: 4.0 DOSAGE FORM (2 DOSAGE FORM, 2 IN 1 DAY), AFTER 8 DAYS USED ON OWN 2 TABLETS IN MORNING AND 2 TAB
     Route: 048
     Dates: end: 20250905
  3. CONTRAVE [Suspect]
     Active Substance: BUPROPION HYDROCHLORIDE\NALTREXONE HYDROCHLORIDE
     Dosage: 3 DOSAGE FORM (2 IN 1 DAY), AFTER 7 DAYS 2 TABLETS IN MORNING AND 1 TABLET IN NIGHT
     Route: 048
  4. CONTRAVE [Suspect]
     Active Substance: BUPROPION HYDROCHLORIDE\NALTREXONE HYDROCHLORIDE
     Dosage: (98 MILLIGRAM(S), 1 TABLET AT 8 AM AND 1  TABLET AT 5 PM
     Route: 048

REACTIONS (10)
  - Dyschezia [Recovering/Resolving]
  - Haematochezia [Recovering/Resolving]
  - Emotional distress [Recovering/Resolving]
  - Binge eating [Recovering/Resolving]
  - Condition aggravated [Recovering/Resolving]
  - Weight increased [Unknown]
  - Pruritus [Recovering/Resolving]
  - Headache [Recovered/Resolved]
  - Drug ineffective [Unknown]
  - Intentional product use issue [Unknown]
